FAERS Safety Report 7865540-1 (Version None)
Quarter: 2011Q4

REPORT INFORMATION
  Report Type: 
  Country: None (occurrence: None)
  Receive Date: 20111028
  Receipt Date: 20110114
  Transmission Date: 20120403
  Serious: No
  Sender: FDA-Public Use
  Company Number: US-GLAXOSMITHKLINE-A0906185A

PATIENT
  Age: 76 Year
  Sex: Male

DRUGS (6)
  1. LORATADINE [Concomitant]
     Dosage: 10MG AS REQUIRED
  2. SINGULAIR [Concomitant]
  3. SULFASALAZINE [Concomitant]
     Dosage: 500MG TWICE PER DAY
  4. DIOVAN HCT [Concomitant]
  5. FOLIC ACID [Concomitant]
     Dosage: 1MG PER DAY
  6. ADVAIR DISKUS 100/50 [Suspect]
     Indication: CHRONIC OBSTRUCTIVE PULMONARY DISEASE
     Route: 055
     Dates: start: 20101101

REACTIONS (1)
  - VISION BLURRED [None]
